FAERS Safety Report 6356764-3 (Version None)
Quarter: 2009Q3

REPORT INFORMATION
  Report Type: 
  Country: None (occurrence: None)
  Receive Date: 20090911
  Receipt Date: 20090911
  Transmission Date: 20100115
  Serious: Yes (Hospitalization)
  Sender: FDA-Public Use
  Company Number: None

PATIENT
  Sex: Male
  Weight: 110 kg

DRUGS (1)
  1. TAXOTERE [Suspect]
     Dosage: 180 MG
     Dates: end: 20090826

REACTIONS (13)
  - CHILLS [None]
  - CONSTIPATION [None]
  - COUGH [None]
  - FATIGUE [None]
  - MYALGIA [None]
  - NAUSEA [None]
  - NEUTROPENIA [None]
  - OROPHARYNGEAL PAIN [None]
  - PRODUCTIVE COUGH [None]
  - SINUSITIS [None]
  - SPUTUM DISCOLOURED [None]
  - SYSTEMIC INFLAMMATORY RESPONSE SYNDROME [None]
  - WEIGHT DECREASED [None]
